FAERS Safety Report 18249533 (Version 1)
Quarter: 2020Q3

REPORT INFORMATION
  Report Type: Spontaneous
  Country: DE (occurrence: DE)
  Receive Date: 20200910
  Receipt Date: 20200910
  Transmission Date: 20201103
  Serious: Yes (Hospitalization)
  Sender: FDA-Public Use
  Company Number: NVSC2020DE245903

PATIENT
  Age: 32 Year
  Sex: Male
  Weight: 86.5 kg

DRUGS (14)
  1. HYDROCORTISONE. [Suspect]
     Active Substance: HYDROCORTISONE
     Dosage: 1 DF, QD, 1 APPLICATION (1 IN 1 D)
     Route: 061
     Dates: start: 20200310, end: 20200320
  2. UPADACITINIB [Suspect]
     Active Substance: UPADACITINIB
     Indication: DERMATITIS ATOPIC
     Dosage: 1 DF, QD
     Route: 048
     Dates: start: 20190814, end: 20200314
  3. SYMBICORT [Concomitant]
     Active Substance: BUDESONIDE\FORMOTEROL FUMARATE DIHYDRATE
     Indication: ASTHMA
     Dosage: 4 DF, QD (2 PUFF, 2 IN 1 D)
     Route: 055
     Dates: start: 2000
  4. IBUPROFEN. [Concomitant]
     Active Substance: IBUPROFEN
     Dosage: 800 MG, QD (800 MG,1 IN 1 D)
     Route: 048
     Dates: start: 20200120, end: 20200224
  5. PIMECROLIMUS. [Suspect]
     Active Substance: PIMECROLIMUS
     Dosage: 1 DF, QD, 1 APPLICATION (1 IN 1 D)
     Route: 061
     Dates: start: 20200310
  6. IBUPROFEN. [Concomitant]
     Active Substance: IBUPROFEN
     Indication: BACK PAIN
     Dosage: 1600 MG, QD (800 MG,2 IN 1 D)
     Route: 048
     Dates: start: 20200113, end: 20200119
  7. PIMECROLIMUS. [Suspect]
     Active Substance: PIMECROLIMUS
     Indication: DERMATITIS ATOPIC
     Dosage: 1 DF, QD, 1 APPLICATION (1 IN 1 D)
     Route: 061
     Dates: start: 20190814, end: 20200309
  8. SALBUHEXAL [Concomitant]
     Active Substance: ALBUTEROL
     Indication: ASTHMA
     Dosage: 1 DF (1 PUFF AS REQUIRED)
     Route: 055
     Dates: start: 1993
  9. MONTELUKAST [Concomitant]
     Active Substance: MONTELUKAST SODIUM
     Indication: ASTHMA
     Dosage: 20 MG, QD (10 MG,2 IN 1 D)
     Route: 048
     Dates: start: 2000
  10. HYDROCORTISONE. [Suspect]
     Active Substance: HYDROCORTISONE
     Indication: DERMATITIS ATOPIC
     Dosage: 1 DF, QD, 1 APPLICATION (1 IN 1 D)
     Route: 061
     Dates: start: 20191009, end: 20191019
  11. NOVALGIN [Concomitant]
     Indication: BACK PAIN
     Dosage: 1 MG, QD
     Route: 014
     Dates: start: 20200109, end: 20200109
  12. NOVALGIN [Concomitant]
     Dosage: 60 DRP, QD (20 DROP,3 IN 1 D)
     Route: 048
     Dates: start: 20200113, end: 20200119
  13. TRIAMCINOLONE ACETONIDE. [Suspect]
     Active Substance: TRIAMCINOLONE ACETONIDE
     Indication: DERMATITIS ATOPIC
     Dosage: 1 DF, QD (1 APPLICATION)
     Route: 061
     Dates: start: 20190814, end: 20191014
  14. NOVALGIN [Concomitant]
     Dosage: 40 DRP, QD (20 DROP,2 IN 1 D)
     Route: 048
     Dates: start: 20200120, end: 20200224

REACTIONS (1)
  - Dermatitis atopic [Not Recovered/Not Resolved]

NARRATIVE: CASE EVENT DATE: 20200220
